FAERS Safety Report 10976195 (Version 2)
Quarter: 2015Q2

REPORT INFORMATION
  Report Type: Spontaneous
  Country: US (occurrence: US)
  Receive Date: 20150401
  Receipt Date: 20150525
  Transmission Date: 20150821
  Serious: No
  Sender: FDA-Public Use
  Company Number: US-JNJFOC-20131200819

PATIENT
  Sex: Male

DRUGS (3)
  1. LIDOCAINE. [Concomitant]
     Active Substance: LIDOCAINE
     Indication: DISCOMFORT
     Dates: start: 20090713, end: 20090717
  2. RISPERDAL [Suspect]
     Active Substance: RISPERIDONE
     Indication: SCHIZOPHRENIA
     Route: 048
     Dates: start: 20090512
  3. LIDOCAINE. [Concomitant]
     Active Substance: LIDOCAINE
     Indication: OROPHARYNGEAL PAIN
     Dates: start: 20090713, end: 20090717

REACTIONS (1)
  - Gynaecomastia [Not Recovered/Not Resolved]
